FAERS Safety Report 22245550 (Version 1)
Quarter: 2023Q2

REPORT INFORMATION
  Report Type: Spontaneous
  Country: US (occurrence: None)
  Receive Date: 20230423
  Receipt Date: 20230423
  Transmission Date: 20230722
  Serious: Yes (Hospitalization)
  Sender: FDA-Public Use
  Company Number: None

PATIENT
  Age: 49 Year
  Sex: Male
  Weight: 123.57 kg

DRUGS (2)
  1. WEGOVY [Suspect]
     Active Substance: SEMAGLUTIDE
     Indication: Obesity
     Dosage: OTHER FREQUENCY : ONCE (WEEKLY);?
     Route: 058
     Dates: start: 20230308, end: 20230308
  2. Wegovy 1mg/0.5ml [Concomitant]
     Dates: start: 20230308, end: 20230308

REACTIONS (10)
  - Transcription medication error [None]
  - Incorrect dose administered [None]
  - Malaise [None]
  - Vomiting [None]
  - Diarrhoea [None]
  - Influenza like illness [None]
  - Bedridden [None]
  - Therapy interrupted [None]
  - Impaired work ability [None]
  - Drug interaction [None]

NARRATIVE: CASE EVENT DATE: 20230308
